FAERS Safety Report 9932384 (Version 1)
Quarter: 2014Q1

REPORT INFORMATION
  Report Type: Spontaneous
  Country: US (occurrence: US)
  Receive Date: 20140228
  Receipt Date: 20140228
  Transmission Date: 20141002
  Serious: No
  Sender: FDA-Public Use
  Company Number: US-GLAXOSMITHKLINE-A1010414A

PATIENT
  Age: 45 Year
  Sex: Female

DRUGS (5)
  1. LAMICTAL [Suspect]
     Indication: BIPOLAR DISORDER
     Dosage: 200MG PER DAY
     Route: 048
     Dates: start: 2012
  2. VALACYCLOVIR [Concomitant]
  3. PRILOSEC [Concomitant]
  4. GLEEVEC [Concomitant]
  5. CYMBALTA [Concomitant]

REACTIONS (1)
  - Alopecia [Not Recovered/Not Resolved]
